FAERS Safety Report 16985658 (Version 1)
Quarter: 2019Q4

REPORT INFORMATION
  Report Type: Spontaneous
  Country: US (occurrence: US)
  Receive Date: 20191101
  Receipt Date: 20191101
  Transmission Date: 20200122
  Serious: Yes (Hospitalization, Other)
  Sender: FDA-Public Use
  Company Number: US-BAYER-2019-193097

PATIENT
  Age: 81 Year
  Sex: Male
  Weight: 178 kg

DRUGS (16)
  1. COQ10 [UBIDECARENONE] [Suspect]
     Active Substance: UBIDECARENONE
  2. NITROGLYCERIN. [Suspect]
     Active Substance: NITROGLYCERIN
  3. ECOTRIN [Suspect]
     Active Substance: ASPIRIN
  4. LUTEIN [ZEAXANTHIN] [Suspect]
     Active Substance: ZEAXANTHIN
  5. OMEPRAZOLE. [Suspect]
     Active Substance: OMEPRAZOLE
     Dosage: 40 MG, QD
  6. METOPROLOL. [Suspect]
     Active Substance: METOPROLOL
  7. BAYER ASPIRIN [Suspect]
     Active Substance: ASPIRIN
     Dosage: 325 MG, QD
     Route: 048
     Dates: start: 2003, end: 2019
  8. LECITHIN [Suspect]
     Active Substance: LECITHIN
  9. FISH OIL [Suspect]
     Active Substance: FISH OIL
  10. NIACIN. [Suspect]
     Active Substance: NIACIN
  11. SULFASALAZINE DELAYED-RELEASE [Suspect]
     Active Substance: SULFASALAZINE
  12. OLIVE LEAF [OLEA EUROPAEA LEAF] [Suspect]
     Active Substance: OLEA EUROPAEA LEAF
  13. VITAMIN D [VITAMIN D NOS] [Suspect]
     Active Substance: VITAMIN D NOS
  14. NEXIUM I.V. [Suspect]
     Active Substance: ESOMEPRAZOLE SODIUM
  15. SIMVASTATIN. [Suspect]
     Active Substance: SIMVASTATIN
  16. TURMERIC [CURCUMA LONGA] [Suspect]
     Active Substance: HERBALS\TURMERIC
     Dosage: UNK
     Dates: start: 2014, end: 2019

REACTIONS (14)
  - Hypovolaemia [Not Recovered/Not Resolved]
  - Coronary artery disease [None]
  - Faeces discoloured [None]
  - Hyperhidrosis [None]
  - Leukocytosis [Recovered/Resolved]
  - Faeces discoloured [None]
  - Blood loss anaemia [Not Recovered/Not Resolved]
  - Dizziness [None]
  - Hypotension [Recovered/Resolved]
  - Gastrointestinal haemorrhage [Not Recovered/Not Resolved]
  - Haematochezia [Not Recovered/Not Resolved]
  - Dyspepsia [None]
  - Multiple allergies [None]
  - Gastric disorder [Recovered/Resolved]

NARRATIVE: CASE EVENT DATE: 201905
